FAERS Safety Report 9410743 (Version 3)
Quarter: 2013Q3

REPORT INFORMATION
  Report Type: Spontaneous
  Country: US (occurrence: US)
  Receive Date: 20130719
  Receipt Date: 20130912
  Transmission Date: 20140515
  Serious: Yes (Life-Threatening, Other)
  Sender: FDA-Public Use
  Company Number: US-ALLERGAN-1310600US

PATIENT
  Age: 76 Year
  Sex: Female
  Weight: 62.13 kg

DRUGS (14)
  1. RESTASIS [Suspect]
     Indication: DRY EYE
     Dosage: 2 GTT, BID
     Route: 047
     Dates: start: 20130128
  2. FLUOROMETHOLONE, 0.1% [Concomitant]
     Indication: PRODUCT USED FOR UNKNOWN INDICATION
  3. SYSTANE GEL [Concomitant]
     Indication: DRY EYE
  4. SYSTANE ULTRA [Concomitant]
     Indication: DRY EYE
  5. ALLEREX [Concomitant]
     Indication: DRY EYE
  6. ALREX [Concomitant]
     Indication: ANXIETY
  7. GENERIC METAMUCIL [Concomitant]
     Indication: IRRITABLE BOWEL SYNDROME
  8. FIBER THERAPY [Concomitant]
     Indication: IRRITABLE BOWEL SYNDROME
  9. SPIRIVA [Concomitant]
     Indication: CHRONIC OBSTRUCTIVE PULMONARY DISEASE
  10. ALBUTEROL [Concomitant]
     Indication: PRODUCT USED FOR UNKNOWN INDICATION
  11. AVAPRO [Concomitant]
     Indication: PRODUCT USED FOR UNKNOWN INDICATION
  12. PRESERVISION [Concomitant]
     Indication: PRODUCT USED FOR UNKNOWN INDICATION
  13. OTC TEARS [Concomitant]
     Indication: PRODUCT USED FOR UNKNOWN INDICATION
  14. LID HYGIENE [Concomitant]
     Indication: PRODUCT USED FOR UNKNOWN INDICATION

REACTIONS (14)
  - Suicidal ideation [Unknown]
  - Corneal exfoliation [Unknown]
  - Anxiety [Unknown]
  - Skin tightness [Unknown]
  - Eyelid function disorder [Unknown]
  - Eyelid ptosis [Unknown]
  - Visual acuity reduced [Unknown]
  - Strabismus [Unknown]
  - Eye pain [Unknown]
  - Ocular discomfort [Unknown]
  - Photophobia [Unknown]
  - Photophobia [Unknown]
  - Eye irritation [Unknown]
  - Drug ineffective [Unknown]
